FAERS Safety Report 5033064-5 (Version None)
Quarter: 2006Q2

REPORT INFORMATION
  Report Type: 
  Country: None (occurrence: None)
  Receive Date: 20060620
  Receipt Date: 20060602
  Transmission Date: 20061013
  Serious: Yes (Hospitalization, Other)
  Sender: FDA-Public Use
  Company Number: US200606000991

PATIENT
  Age: 32 Year
  Sex: Female

DRUGS (11)
  1. HUMATROPE [Suspect]
     Indication: GROWTH HORMONE DEFICIENCY
     Dosage: 0.9 MG, DAILY (1.D)
     Dates: start: 20040101
  2. HUMATROPEN (HUMATROPEN) PEN,REUSABLE [Concomitant]
  3. OSCAL 500-D (CALCIUM, COLECALCIFEROL) [Concomitant]
  4. CHILDREN'S CHEWABLE VITAMINS (VITAMINS NOS) [Concomitant]
  5. FOLIC ACID [Concomitant]
  6. SYNTHROID [Concomitant]
  7. PREDNISONE TAB [Concomitant]
  8. PREMPHASE (PREMARIN;CYCRIN 14/14) [Concomitant]
  9. TEGRETOL [Concomitant]
  10. PLAQUENIL [Concomitant]
  11. VIOXX /USA/ (ROFECOXIB) [Concomitant]

REACTIONS (12)
  - ANOREXIA [None]
  - BRAIN NEOPLASM [None]
  - CONVULSION [None]
  - DRY MOUTH [None]
  - ENURESIS [None]
  - HEADACHE [None]
  - MALAISE [None]
  - NEOPLASM RECURRENCE [None]
  - PHARMACEUTICAL PRODUCT COMPLAINT [None]
  - POLLAKIURIA [None]
  - VISUAL FIELD DEFECT [None]
  - WEIGHT DECREASED [None]
